FAERS Safety Report 6416178-4 (Version None)
Quarter: 2009Q4

REPORT INFORMATION
  Report Type: 
  Country: None (occurrence: None)
  Receive Date: 20091023
  Receipt Date: 20091020
  Transmission Date: 20100525
  Serious: Yes (Hospitalization)
  Sender: FDA-Public Use
  Company Number: 1000009576

PATIENT
  Age: 73 Year
  Sex: Female

DRUGS (7)
  1. THYROID TAB [Suspect]
     Indication: HYPOTHYROIDISM
     Dosage: 60 MG (60 MG, 1 IN 1 D), ORAL; 90 MG (90 MG, 1 IN 1 D), ORAL
     Route: 048
     Dates: start: 19990101, end: 20070101
  2. THYROID TAB [Suspect]
     Indication: HYPOTHYROIDISM
     Dosage: 60 MG (60 MG, 1 IN 1 D), ORAL; 90 MG (90 MG, 1 IN 1 D), ORAL
     Route: 048
     Dates: start: 20070101, end: 20090201
  3. THYROID TAB [Suspect]
     Indication: HYPOTHYROIDISM
     Dosage: 60 MG (60 MG, 1 IN 1 D), ORAL; 90 MG (90 MG, 1 IN 1 D), ORAL
     Route: 048
     Dates: start: 20090201, end: 20090901
  4. BENICAR [Concomitant]
  5. PROTONIX [Concomitant]
  6. LORATADINE [Concomitant]
  7. DETROL [Concomitant]

REACTIONS (4)
  - ATRIAL FIBRILLATION [None]
  - COLD SWEAT [None]
  - DIZZINESS [None]
  - DYSPNOEA [None]
